FAERS Safety Report 5531472-7 (Version None)
Quarter: 2007Q4

REPORT INFORMATION
  Report Type: 
  Country: None (occurrence: None)
  Receive Date: 20071203
  Receipt Date: 20071126
  Transmission Date: 20080405
  Serious: Yes (Disabling, Other)
  Sender: FDA-Public Use
  Company Number: FR-ELI_LILLY_AND_COMPANY-FR200711005833

PATIENT
  Sex: Male

DRUGS (1)
  1. ZYPREXA [Suspect]
     Route: 048
     Dates: start: 20020101

REACTIONS (5)
  - BLINDNESS UNILATERAL [None]
  - DIABETES MELLITUS [None]
  - DYSURIA [None]
  - OBESITY [None]
  - SKIN DISORDER [None]
